FAERS Safety Report 8942724 (Version 1)
Quarter: 2012Q4

REPORT INFORMATION
  Report Type: 
  Country: BR (occurrence: BR)
  Receive Date: 20121204
  Receipt Date: 20121204
  Transmission Date: 20130627
  Serious: Yes (Hospitalization, Other)
  Sender: FDA-Public Use
  Company Number: BR-PFIZER INC-2012297579

PATIENT
  Age: 64 Year
  Sex: Female

DRUGS (2)
  1. XALATAN [Suspect]
     Indication: CATARACT
     Dosage: 3 ug (one drop in each eye), 1x/day
     Route: 047
     Dates: start: 201103, end: 201208
  2. XALATAN [Suspect]
     Indication: GLAUCOMA

REACTIONS (5)
  - Glaucoma [Unknown]
  - Cataract [Unknown]
  - Intraocular pressure increased [Unknown]
  - Drug ineffective [Unknown]
  - Off label use [Recovered/Resolved]
